FAERS Safety Report 23265734 (Version 2)
Quarter: 2023Q4

REPORT INFORMATION
  Report Type: Report from Study
  Country: ES (occurrence: None)
  Receive Date: 20231206
  Receipt Date: 20231208
  Transmission Date: 20240109
  Serious: Yes (Hospitalization)
  Sender: FDA-Public Use
  Company Number: ES-ROCHE-3460822

PATIENT
  Age: 66 Year
  Sex: Female
  Weight: 124 kg

DRUGS (32)
  1. GLOFITAMAB [Suspect]
     Active Substance: GLOFITAMAB
     Indication: High-grade B-cell lymphoma
     Dosage: ON 28/NOV/2023 FROM 10:59 AM TO 6:59 PM, SHE RECEIVED MOST RECENT DOSE OF GLOFITAMAB PRIOR TO HYPOTE
     Route: 042
     Dates: start: 20231116
  2. OBINUTUZUMAB [Suspect]
     Active Substance: OBINUTUZUMAB
     Indication: High-grade B-cell lymphoma
     Dosage: TOTAL VOLUME: 309 ML
     Route: 042
     Dates: start: 20231109
  3. POLATUZUMAB VEDOTIN [Suspect]
     Active Substance: POLATUZUMAB VEDOTIN
     Indication: High-grade B-cell lymphoma
     Dosage: TOTAL VOLUME: 117 ML
     Route: 042
     Dates: start: 20231110
  4. TOCILIZUMAB [Suspect]
     Active Substance: TOCILIZUMAB
     Indication: Cytokine release syndrome
     Dosage: AT 11:16 PM
     Route: 042
     Dates: start: 20231117
  5. ACETAMINOPHEN [Concomitant]
     Active Substance: ACETAMINOPHEN
     Route: 048
     Dates: start: 20231109, end: 20231109
  6. ACETAMINOPHEN [Concomitant]
     Active Substance: ACETAMINOPHEN
     Route: 048
     Dates: start: 20231110, end: 20231110
  7. ACETAMINOPHEN [Concomitant]
     Active Substance: ACETAMINOPHEN
     Dates: start: 20231116, end: 20231116
  8. POLARAMINE [Concomitant]
     Active Substance: DEXCHLORPHENIRAMINE MALEATE
     Route: 042
     Dates: start: 20231109, end: 20231109
  9. DEXCHLORPHENIRAMINE [Concomitant]
     Active Substance: DEXCHLORPHENIRAMINE
     Route: 042
     Dates: start: 20231110, end: 20231110
  10. DEXCHLORPHENIRAMINE [Concomitant]
     Active Substance: DEXCHLORPHENIRAMINE
     Route: 042
     Dates: start: 20231116, end: 20231116
  11. METHYLPREDNISOLONE [Concomitant]
     Active Substance: METHYLPREDNISOLONE
     Route: 042
     Dates: start: 20231109, end: 20231109
  12. DEXAMETHASONE [Concomitant]
     Active Substance: DEXAMETHASONE
     Route: 042
     Dates: start: 20231116, end: 20231116
  13. ELIQUIS [Concomitant]
     Active Substance: APIXABAN
  14. LEVOTHYROXINE [Concomitant]
     Active Substance: LEVOTHYROXINE
  15. BISOPROLOL [Concomitant]
     Active Substance: BISOPROLOL\BISOPROLOL FUMARATE
     Dates: end: 20231129
  16. FLUTICASONE [Concomitant]
     Active Substance: FLUTICASONE
  17. ROSUVASTATIN [Concomitant]
     Active Substance: ROSUVASTATIN
  18. FLUOXETINE [Concomitant]
     Active Substance: FLUOXETINE HYDROCHLORIDE
  19. FUROSEMIDE [Concomitant]
     Active Substance: FUROSEMIDE
     Indication: Hypertension
     Dates: end: 20231113
  20. FUROSEMIDE [Concomitant]
     Active Substance: FUROSEMIDE
     Dates: start: 20231114, end: 20231122
  21. METFORMIN [Concomitant]
     Active Substance: METFORMIN HYDROCHLORIDE
  22. OMEPRAZOLE [Concomitant]
     Active Substance: OMEPRAZOLE
  23. GLYCOPYRRONIUM\INDACATEROL [Concomitant]
     Active Substance: GLYCOPYRRONIUM\INDACATEROL
  24. RYBELSUS [Concomitant]
     Active Substance: SEMAGLUTIDE
  25. PREDNISONE [Concomitant]
     Active Substance: PREDNISONE
     Dates: start: 20231104, end: 20231108
  26. POTASSIUM CHLORIDE [Concomitant]
     Active Substance: POTASSIUM CHLORIDE
     Indication: Hypokalaemia
     Dates: start: 20231102
  27. CALCIUM [Concomitant]
     Active Substance: CALCIUM
     Indication: Hypocalcaemia
     Dates: start: 20231102, end: 20231106
  28. MEROPENEM [Concomitant]
     Active Substance: MEROPENEM
     Dates: start: 20231118, end: 20231121
  29. AMIODARONE [Concomitant]
     Active Substance: AMIODARONE
     Indication: Atrial fibrillation
     Dates: start: 20231118, end: 20231122
  30. RASBURICASE [Concomitant]
     Active Substance: RASBURICASE
     Route: 042
     Dates: start: 20231109, end: 20231109
  31. ONDANSETRON [Concomitant]
     Active Substance: ONDANSETRON
     Indication: Prophylaxis of nausea and vomiting
     Dates: start: 20231128, end: 20231128
  32. DAPAGLIFLOZIN [Concomitant]
     Active Substance: DAPAGLIFLOZIN
     Indication: Hypertension
     Dates: start: 20231122, end: 20231129

REACTIONS (2)
  - Cytokine release syndrome [Recovered/Resolved]
  - Hypotension [Recovered/Resolved]

NARRATIVE: CASE EVENT DATE: 20231117
